FAERS Safety Report 24591223 (Version 3)
Quarter: 2024Q4

REPORT INFORMATION
  Report Type: Spontaneous
  Country: NZ (occurrence: NZ)
  Receive Date: 20241108
  Receipt Date: 20241227
  Transmission Date: 20250114
  Serious: Yes (Hospitalization)
  Sender: CSL BEHRING
  Company Number: NZ-BEH-2024183658

PATIENT
  Age: 7 Year
  Sex: Female
  Weight: 29 kg

DRUGS (4)
  1. HUMAN IMMUNOGLOBULIN G [Suspect]
     Active Substance: HUMAN IMMUNOGLOBULIN G
     Indication: Kawasaki^s disease
     Dosage: 60 G
     Route: 042
     Dates: start: 20241023, end: 20241024
  2. HUMAN IMMUNOGLOBULIN G [Suspect]
     Active Substance: HUMAN IMMUNOGLOBULIN G
     Dosage: 60 G
     Route: 042
     Dates: start: 20241026, end: 20241026
  3. AMOXICILLIN [Concomitant]
     Active Substance: AMOXICILLIN
     Dosage: 250MG/5MG
     Route: 048
     Dates: start: 20241024
  4. ASPIRIN [Concomitant]
     Active Substance: ASPIRIN
     Dosage: 300 MG
     Route: 048
     Dates: start: 20241024

REACTIONS (3)
  - Hypotension [Not Recovered/Not Resolved]
  - Bradycardia [Not Recovered/Not Resolved]
  - Haemolysis [Not Recovered/Not Resolved]

NARRATIVE: CASE EVENT DATE: 20241024
